FAERS Safety Report 4506155-2 (Version None)
Quarter: 2004Q4

REPORT INFORMATION
  Report Type: 
  Country: None (occurrence: None)
  Receive Date: 20041025
  Receipt Date: 20040510
  Transmission Date: 20050328
  Serious: Yes (Other)
  Sender: FDA-Public Use
  Company Number: US-JNJFOC-20040403732

PATIENT
  Age: 50 Year
  Sex: Male
  Weight: 94.3482 kg

DRUGS (14)
  1. REMICADE [Suspect]
     Indication: CROHN'S DISEASE
     Dosage: SEE IMAGE
     Route: 042
     Dates: start: 20011210
  2. REMICADE [Suspect]
     Indication: CROHN'S DISEASE
     Dosage: SEE IMAGE
     Route: 042
     Dates: start: 20020606
  3. REMICADE [Suspect]
     Indication: CROHN'S DISEASE
     Dosage: SEE IMAGE
     Route: 042
     Dates: start: 20030304
  4. REMICADE [Suspect]
  5. REMICADE [Suspect]
  6. MERCAPTOPURINE [Suspect]
     Indication: CROHN'S DISEASE
     Dosage: SEE IMAGE
     Route: 048
     Dates: start: 20001201, end: 20010101
  7. MERCAPTOPURINE [Suspect]
     Indication: CROHN'S DISEASE
     Dosage: SEE IMAGE
     Route: 048
     Dates: start: 20001101, end: 20020901
  8. 5-ASA (MESALAZINE) [Concomitant]
  9. ANTIBIOTICS (ANTIBIOTICS) [Concomitant]
  10. PREDNISONE [Concomitant]
  11. ASACOL [Concomitant]
  12. DETROL [Concomitant]
  13. CIPRO [Concomitant]
  14. LEVSINEX (HYOSCYAMINE SULFATE) [Concomitant]

REACTIONS (4)
  - DIARRHOEA [None]
  - DRUG EFFECT DECREASED [None]
  - HEPATITIS [None]
  - MICTURITION URGENCY [None]
